FAERS Safety Report 4446706-X (Version None)
Quarter: 2004Q3

REPORT INFORMATION
  Report Type: 
  Country: None (occurrence: None)
  Receive Date: 20040908
  Receipt Date: 20040825
  Transmission Date: 20050211
  Serious: Yes (Hospitalization)
  Sender: FDA-Public Use
  Company Number: 2004-07-1568

PATIENT
  Age: 53 Year
  Sex: Male
  Weight: 67 kg

DRUGS (1)
  1. INTRON A [Suspect]
     Indication: HEPATITIS C
     Dosage: 3 MIU TIW INTRAMUSCULAR
     Route: 030
     Dates: start: 20040204, end: 20040719

REACTIONS (7)
  - BUTTOCK PAIN [None]
  - ERYTHEMA [None]
  - INJECTION SITE DESQUAMATION [None]
  - INJECTION SITE PAIN [None]
  - PYREXIA [None]
  - SKIN ULCER [None]
  - SWELLING [None]
